FAERS Safety Report 12633238 (Version 1)
Quarter: 2016Q3

REPORT INFORMATION
  Report Type: Spontaneous
  Country: US (occurrence: None)
  Receive Date: 20160808
  Receipt Date: 20160808
  Transmission Date: 20161109
  Serious: No
  Sender: FDA-Public Use
  Company Number: None

PATIENT
  Age: 53 Year
  Sex: Female
  Weight: 56.7 kg

DRUGS (12)
  1. RESVRATROL (ALL ORGANIC SUPPLEMENTS BY GARDEN OF LIFE AND ORGANIC INDIA. [Concomitant]
  2. MULTI-VITAMIN [Concomitant]
     Active Substance: .ALPHA.-TOCOPHEROL ACETATE, DL-\ASCORBIC ACID\CYANOCOBALAMIN\FLUORIDE ION\FOLIC ACID\NIACIN\PYRIDOXINE\RIBOFLAVIN\THIAMINE\VITAMIN A\VITAMIN D
  3. TURMERIC [Concomitant]
     Active Substance: TURMERIC
  4. VIT B-COMPLEX [Concomitant]
  5. PREDNISONE 10 MG TABLET, 10 MG [Suspect]
     Active Substance: PREDNISONE
     Indication: DERMATITIS CONTACT
     Route: 048
     Dates: start: 20160727, end: 20160805
  6. VITAMIN E [Concomitant]
     Active Substance: .ALPHA.-TOCOPHEROL
  7. COQ10 [Concomitant]
     Active Substance: UBIDECARENONE
  8. MAGNESIUM POWDER [Concomitant]
  9. IODINE LIQUID [Concomitant]
  10. VITAMIN D3 [Concomitant]
     Active Substance: CHOLECALCIFEROL
  11. PROBIOTIC [Concomitant]
     Active Substance: PROBIOTICS NOS
  12. HOLY BASIL [Concomitant]

REACTIONS (1)
  - Formication [None]

NARRATIVE: CASE EVENT DATE: 20160729
